FAERS Safety Report 9675504 (Version 1)
Quarter: 2013Q4

REPORT INFORMATION
  Report Type: Spontaneous
  Country: US (occurrence: US)
  Receive Date: 20131107
  Receipt Date: 20131107
  Transmission Date: 20140711
  Serious: Yes (Hospitalization)
  Sender: FDA-Public Use
  Company Number: US-MYLANLABS-2013S1024372

PATIENT
  Age: 55 Year
  Sex: Male

DRUGS (2)
  1. AMLODIPINE [Suspect]
     Indication: OVERDOSE
     Route: 048
  2. LABETALOL [Suspect]
     Indication: OVERDOSE
     Route: 048

REACTIONS (3)
  - Hypotension [Recovering/Resolving]
  - Mental status changes [Unknown]
  - Overdose [Recovering/Resolving]
